FAERS Safety Report 17053076 (Version 1)
Quarter: 2019Q4

REPORT INFORMATION
  Report Type: Spontaneous
  Country: US (occurrence: US)
  Receive Date: 20191022
  Receipt Date: 20191022
  Transmission Date: 20200122
  Serious: Yes (Hospitalization)
  Sender: FDA-Public Use
  Company Number: None

PATIENT
  Age: 81 Year
  Sex: Male

DRUGS (1)
  1. ABIRATERONE ACETATE 250MG APOTEX [Suspect]
     Active Substance: ABIRATERONE ACETATE
     Indication: PROSTATE CANCER
     Dosage: 1000MG
     Route: 048
     Dates: start: 20190906

REACTIONS (4)
  - Unresponsive to stimuli [None]
  - Decreased appetite [None]
  - Staring [None]
  - Urinary incontinence [None]

NARRATIVE: CASE EVENT DATE: 20191003
